FAERS Safety Report 23825354 (Version 1)
Quarter: 2024Q2

REPORT INFORMATION
  Report Type: Spontaneous
  Country: FR (occurrence: FR)
  Receive Date: 20240507
  Receipt Date: 20240507
  Transmission Date: 20240716
  Serious: Yes (Hospitalization, Other)
  Sender: FDA-Public Use
  Company Number: None

PATIENT
  Age: 15 Year
  Sex: Female
  Weight: 43 kg

DRUGS (8)
  1. SEVOFLURANE [Suspect]
     Active Substance: SEVOFLURANE
     Indication: Maintenance of anaesthesia
     Dates: start: 20240417, end: 20240417
  2. ALFENTANIL HYDROCHLORIDE [Suspect]
     Active Substance: ALFENTANIL HYDROCHLORIDE
     Indication: Anaesthesia
     Dosage: 1 MG (MILLIGRAM) ONE TOTAL (DOSAGE TEXT: 1MG) (0,5 MG/ML), SOLUTION INJECTABLE
     Route: 042
     Dates: start: 20240417, end: 20240417
  3. PROPOFOL [Suspect]
     Active Substance: PROPOFOL
     Indication: Anaesthesia
     Dosage: 400 MG (MILLIGRAM) ONE TOTAL, (PROPOFOL LIPURO 1 % (10 MG/ML), EMULSION FOR INJECTION OR INFUSION)
     Route: 042
     Dates: start: 20240417, end: 20240417
  4. KETOPROFEN [Suspect]
     Active Substance: KETOPROFEN
     Indication: Analgesic therapy
     Dosage: 50 MG (MILLIGRAM) ONE TOTAL (DOSAGE TEXT: 50MG) (KETOPROFENE MEDISOL 100 MG/4 ML, SOLUTION TO DILUTE
     Route: 042
     Dates: start: 20240417, end: 20240417
  5. LIDOCAINE AND PRILOCAINE [Suspect]
     Active Substance: LIDOCAINE\PRILOCAINE
     Indication: Local anaesthesia
     Dosage: (LIDOCAINE/PRILOCAINE AGUETTANT 5 %, CREAME)
     Route: 003
     Dates: start: 20240417, end: 20240417
  6. DEXAMETHASONE [Suspect]
     Active Substance: DEXAMETHASONE
     Indication: Prophylaxis of nausea and vomiting
     Dosage: 8 MG (MILLIGRAM) ONE TOTAL (DEXAMETHASONE VIATRIS 20 MG/5 ML, IN AMPOULE)
     Route: 042
     Dates: start: 20240417, end: 20240417
  7. ROPIVACAINE HYDROCHLORIDE [Suspect]
     Active Substance: ROPIVACAINE HYDROCHLORIDE
     Indication: Local anaesthesia
     Dosage: 10 ML (MILLILITRE) ONE TOTAL (ROPIVACAINE NORIDEM 2 MG/ML, SOLUTION INJECTABLE)
     Route: 004
     Dates: start: 20240417, end: 20240417
  8. ACETAMINOPHEN [Suspect]
     Active Substance: ACETAMINOPHEN
     Indication: Analgesic therapy
     Dosage: 500 MG (MILLIGRAM) ONE TOTAL (DOSAGE TEXT: 500MG) (PARACETAMOL B BRAUN)
     Route: 042
     Dates: start: 20240417, end: 20240417

REACTIONS (1)
  - Angioedema [Recovered/Resolved]

NARRATIVE: CASE EVENT DATE: 20240417
